FAERS Safety Report 13805823 (Version 3)
Quarter: 2018Q1

REPORT INFORMATION
  Report Type: Report from Study
  Country: US (occurrence: US)
  Receive Date: 20170728
  Receipt Date: 20180214
  Transmission Date: 20180508
  Serious: Yes (Hospitalization)
  Sender: FDA-Public Use
  Company Number: US-PFIZER INC-2016570563

PATIENT
  Age: 76 Year
  Sex: Female
  Weight: 90.72 kg

DRUGS (10)
  1. VITAMIN D3 [Concomitant]
     Active Substance: CHOLECALCIFEROL
     Indication: BONE DISORDER
     Dosage: 2000 MG, 1X/DAY
     Dates: start: 201610
  2. CALCIUM [Concomitant]
     Active Substance: CALCIUM
     Indication: BONE DISORDER
     Dosage: 2-3 PILLS A DAY
     Dates: start: 201701
  3. CALCIUM [Concomitant]
     Active Substance: CALCIUM
     Dosage: UNK
     Dates: start: 201702
  4. IBRANCE [Suspect]
     Active Substance: PALBOCICLIB
     Indication: BREAST CANCER METASTATIC
     Dosage: 125 MG, DAILY (ONE CAPSULE), CYCLIC (ONCE A DAY, FOR 21 DAYS FOR 7 DAYS)
     Route: 048
     Dates: start: 20160928
  5. FEMARA [Concomitant]
     Active Substance: LETROZOLE
     Indication: BONE DISORDER
     Dosage: UNK, 1X/DAY
     Dates: start: 201609
  6. FEMARA [Concomitant]
     Active Substance: LETROZOLE
     Dosage: UNK, CYCLIC
  7. ESCITALOPRAM [Concomitant]
     Active Substance: ESCITALOPRAM OXALATE
     Dosage: 10 MG, UNK
     Dates: start: 20170717
  8. IBRANCE [Suspect]
     Active Substance: PALBOCICLIB
     Dosage: 125 MG, UNK
     Route: 048
  9. LETROZOLE. [Suspect]
     Active Substance: LETROZOLE
     Indication: BREAST CANCER METASTATIC
     Dosage: 2.5 MG, 1X/DAY
  10. PREMARIN [Concomitant]
     Active Substance: ESTROGENS, CONJUGATED
     Dosage: 40 MG, 1X/DAY
     Dates: start: 201609

REACTIONS (15)
  - Pre-existing condition improved [Not Recovered/Not Resolved]
  - Mean cell haemoglobin concentration increased [Unknown]
  - Joint stiffness [Unknown]
  - White blood cell count decreased [Unknown]
  - Cough [Unknown]
  - Nasopharyngitis [Unknown]
  - Dry skin [Not Recovered/Not Resolved]
  - Red blood cell count decreased [Unknown]
  - Glomerular filtration rate decreased [Unknown]
  - Arthralgia [Not Recovered/Not Resolved]
  - Alopecia [Not Recovered/Not Resolved]
  - Mean cell volume increased [Unknown]
  - Therapeutic response unexpected [Not Recovered/Not Resolved]
  - Haemoglobin decreased [Unknown]
  - Red cell distribution width increased [Unknown]

NARRATIVE: CASE EVENT DATE: 201609
